FAERS Safety Report 4663204-9 (Version None)
Quarter: 2005Q2

REPORT INFORMATION
  Report Type: 
  Country: None (occurrence: None)
  Receive Date: 20050513
  Receipt Date: 20050502
  Transmission Date: 20051028
  Serious: Yes (Other)
  Sender: FDA-Public Use
  Company Number: 2005069746

PATIENT
  Age: 51 Year
  Sex: Female
  Weight: 61.2356 kg

DRUGS (9)
  1. BEXTRA [Suspect]
     Indication: OSTEOARTHRITIS
     Dosage: 20 MG (20 MG, 1 IN 1 D), ORAL
     Route: 048
     Dates: end: 20050201
  2. DILTIAZEM [Concomitant]
  3. KARVEA HCT (HYDROCHLOROTHIAZIDE, IRBESARTAN) [Concomitant]
  4. ATENOLOL [Concomitant]
  5. BUPROPION HYDROCHLORIDE [Concomitant]
  6. QUETIAPINE FUMARATE [Concomitant]
  7. CARISOPRODOL [Concomitant]
  8. CYCLOBENZAPRINE HYDROCHLORIDE [Concomitant]
  9. DIAZEPAM [Concomitant]

REACTIONS (8)
  - BLOOD PRESSURE INADEQUATELY CONTROLLED [None]
  - CHEST WALL PAIN [None]
  - DRUG EFFECT DECREASED [None]
  - HEART RATE INCREASED [None]
  - INCORRECT DOSE ADMINISTERED [None]
  - JOINT ARTHROPLASTY [None]
  - LUNG NEOPLASM MALIGNANT [None]
  - POST PROCEDURAL PAIN [None]
